FAERS Safety Report 18515809 (Version 1)
Quarter: 2020Q4

REPORT INFORMATION
  Report Type: Spontaneous
  Country: CA (occurrence: CA)
  Receive Date: 20201118
  Receipt Date: 20201118
  Transmission Date: 20210114
  Serious: Yes (Other)
  Sender: FDA-Public Use
  Company Number: CA-JNJFOC-20201109860

PATIENT
  Age: 40 Year
  Sex: Male

DRUGS (12)
  1. CINACALCET. [Concomitant]
     Active Substance: CINACALCET
     Route: 065
  2. VITAMINS NOS [Concomitant]
     Active Substance: VITAMINS
     Route: 065
  3. ACETAMINOPHEN. [Concomitant]
     Active Substance: ACETAMINOPHEN
     Route: 048
  4. ALLOPURINOL. [Concomitant]
     Active Substance: ALLOPURINOL
     Route: 065
  5. REPLAVITE                          /00058902/ [Concomitant]
     Route: 065
  6. HYDROCORTISONE. [Concomitant]
     Active Substance: HYDROCORTISONE
     Route: 042
  7. LASIX [Concomitant]
     Active Substance: FUROSEMIDE
     Route: 065
  8. INFLIXIMAB, RECOMBINANT [Suspect]
     Active Substance: INFLIXIMAB
     Indication: CROHN^S DISEASE
     Route: 042
  9. ARANESP [Concomitant]
     Active Substance: DARBEPOETIN ALFA
     Route: 042
  10. PREDNISONE. [Concomitant]
     Active Substance: PREDNISONE
     Route: 065
  11. VITAMIN D                          /00107901/ [Concomitant]
     Active Substance: ERGOCALCIFEROL
     Route: 065
  12. IRON [Concomitant]
     Active Substance: IRON

REACTIONS (5)
  - Nausea [Recovered/Resolved]
  - Intentional product use issue [Recovered/Resolved]
  - Crohn^s disease [Recovered/Resolved]
  - Heart rate irregular [Recovered/Resolved]
  - Off label use [Recovered/Resolved]
